FAERS Safety Report 5407532-8 (Version None)
Quarter: 2007Q3

REPORT INFORMATION
  Report Type: 
  Country: None (occurrence: None)
  Receive Date: 20070807
  Receipt Date: 20070731
  Transmission Date: 20080115
  Serious: Yes (Other)
  Sender: FDA-Public Use
  Company Number: US-PFIZER INC-2007063340

PATIENT
  Sex: Male

DRUGS (8)
  1. LYRICA [Suspect]
     Indication: HERPES ZOSTER
  2. NEURONTIN [Suspect]
  3. CYMBALTA [Concomitant]
  4. ALTACE [Concomitant]
  5. COREG [Concomitant]
  6. LASIX [Concomitant]
  7. ZETIA [Concomitant]
  8. ACYCLOVIR [Concomitant]

REACTIONS (6)
  - DRUG INEFFECTIVE [None]
  - LACERATION [None]
  - LOSS OF CONSCIOUSNESS [None]
  - PLATELET COUNT DECREASED [None]
  - RED BLOOD CELL COUNT DECREASED [None]
  - WHITE BLOOD CELL COUNT DECREASED [None]
